FAERS Safety Report 12459495 (Version 4)
Quarter: 2017Q1

REPORT INFORMATION
  Report Type: Spontaneous
  Country: US (occurrence: US)
  Receive Date: 20160613
  Receipt Date: 20170104
  Transmission Date: 20170428
  Serious: Yes (Life-Threatening, Other)
  Sender: FDA-Public Use
  Company Number: US-GLAXOSMITHKLINE-US2016GSK083530

PATIENT
  Sex: Female

DRUGS (6)
  1. LOVAZA [Suspect]
     Active Substance: OMEGA-3-ACID ETHYL ESTERS
     Indication: HYPERTRIGLYCERIDAEMIA
     Dosage: 1 DF, BID
     Route: 048
     Dates: start: 201611, end: 20161208
  2. KLONOPIN [Concomitant]
     Active Substance: CLONAZEPAM
  3. OMEGA-3-ACID ETHYL ESTERS. [Suspect]
     Active Substance: OMEGA-3-ACID ETHYL ESTERS
     Indication: BLOOD TRIGLYCERIDES ABNORMAL
     Dosage: 1000 MG, UNK
     Dates: start: 201604
  4. MORPHINE [Concomitant]
     Active Substance: MORPHINE
  5. CLONAZEPAM. [Concomitant]
     Active Substance: CLONAZEPAM
  6. OMEGA-3 ACID ETHYL ESTERS [Suspect]
     Active Substance: OMEGA-3-ACID ETHYL ESTERS
     Indication: PRODUCT USED FOR UNKNOWN INDICATION

REACTIONS (12)
  - Cholecystectomy [Unknown]
  - Stress [Unknown]
  - Flank pain [Unknown]
  - Surgery [Unknown]
  - Blood pressure abnormal [Unknown]
  - Perforation bile duct [Unknown]
  - Pain in extremity [Not Recovered/Not Resolved]
  - Peritonitis [Unknown]
  - Malaise [Unknown]
  - Fatigue [Unknown]
  - Dysuria [Unknown]
  - Pain [Unknown]
